FAERS Safety Report 17439741 (Version 1)
Quarter: 2020Q1

REPORT INFORMATION
  Report Type: Spontaneous
  Country: US (occurrence: US)
  Receive Date: 20200219
  Receipt Date: 20200219
  Transmission Date: 20200409
  Serious: Yes (Life-Threatening, Other)
  Sender: FDA-Public Use
  Company Number: None

PATIENT
  Age: 63 Year
  Sex: Female
  Weight: 94 kg

DRUGS (3)
  1. GILENYA [Suspect]
     Active Substance: FINGOLIMOD HYDROCHLORIDE
     Indication: MULTIPLE SCLEROSIS
     Route: 048
     Dates: start: 20180901, end: 20181201
  2. AUBAGIO [Suspect]
     Active Substance: TERIFLUNOMIDE
     Indication: MULTIPLE SCLEROSIS
     Route: 048
     Dates: start: 20121201, end: 20170801
  3. OCREVUS [Concomitant]
     Active Substance: OCRELIZUMAB
     Dates: start: 20190215

REACTIONS (3)
  - Renal cell carcinoma [None]
  - Flank pain [None]
  - Renal mass [None]

NARRATIVE: CASE EVENT DATE: 20190501
